FAERS Safety Report 7907504-5 (Version None)
Quarter: 2011Q4

REPORT INFORMATION
  Report Type: 
  Country: None (occurrence: None)
  Receive Date: 20111110
  Receipt Date: 20111027
  Transmission Date: 20120403
  Serious: Yes (Hospitalization)
  Sender: FDA-Public Use
  Company Number: US-BAYER-2011-017077

PATIENT
  Age: 22 Year
  Sex: Female
  Weight: 59.864 kg

DRUGS (7)
  1. PRILOSEC [Concomitant]
     Indication: DYSPEPSIA
  2. NEXIUM [Concomitant]
  3. YASMIN [Suspect]
     Indication: CONTRACEPTION
     Dosage: UNK
     Dates: start: 20030301, end: 20060301
  4. ACETAMINOPHEN [Concomitant]
     Indication: HEADACHE
  5. YAZ [Suspect]
     Indication: CONTRACEPTION
     Dosage: UNK
     Dates: start: 20070801, end: 20071101
  6. ACIPHEX [Concomitant]
  7. ORTHO CYCLEN-28 [Concomitant]

REACTIONS (9)
  - INJURY [None]
  - POST CHOLECYSTECTOMY SYNDROME [None]
  - ANXIETY [None]
  - CHOLECYSTITIS CHRONIC [None]
  - GALLBLADDER INJURY [None]
  - BILIARY DYSKINESIA [None]
  - EMOTIONAL DISORDER [None]
  - MENTAL DISORDER [None]
  - PAIN [None]
